FAERS Safety Report 10567404 (Version 3)
Quarter: 2016Q4

REPORT INFORMATION
  Report Type: Report from Study
  Country: US (occurrence: US)
  Receive Date: 20141106
  Receipt Date: 20161006
  Transmission Date: 20170206
  Serious: Yes (Other)
  Sender: FDA-Public Use
  Company Number: US-AMGEN-USASL2014085283

PATIENT
  Age: 76 Year
  Sex: Female

DRUGS (1)
  1. ENBREL [Suspect]
     Active Substance: ETANERCEPT
     Indication: RHEUMATOID ARTHRITIS
     Dosage: 25 MG, 2 TIMES/WK
     Route: 058

REACTIONS (11)
  - Eye infection [Unknown]
  - Eye discharge [Unknown]
  - Back pain [Unknown]
  - Injury corneal [Unknown]
  - Eye disorder [Unknown]
  - Blindness unilateral [Unknown]
  - Tooth extraction [Unknown]
  - Arthralgia [Unknown]
  - Mobility decreased [Unknown]
  - Biopsy [Unknown]
  - Corneal transplant [Unknown]

NARRATIVE: CASE EVENT DATE: 201305
